FAERS Safety Report 10763555 (Version 2)
Quarter: 2015Q1

REPORT INFORMATION
  Report Type: Report from Study
  Country: US (occurrence: US)
  Receive Date: 20150204
  Receipt Date: 20150219
  Transmission Date: 20150721
  Serious: Yes (Hospitalization, Disabling, Other)
  Sender: FDA-Public Use
  Company Number: US-CELGENE-163-21880-14063078

PATIENT
  Age: 62 Year
  Sex: Male
  Weight: 81.04 kg

DRUGS (9)
  1. EPOETIN ALFA [Concomitant]
     Active Substance: ERYTHROPOIETIN
     Indication: ANAEMIA
     Route: 065
     Dates: start: 20140311, end: 20140311
  2. EPOETIN ALFA [Concomitant]
     Active Substance: ERYTHROPOIETIN
     Route: 065
     Dates: start: 20140318, end: 20140318
  3. GABAPENTIN. [Concomitant]
     Active Substance: GABAPENTIN
     Indication: NEUROPATHY PERIPHERAL
     Route: 065
  4. AREDIA [Concomitant]
     Active Substance: PAMIDRONATE DISODIUM
     Indication: PLASMA CELL MYELOMA
     Route: 065
     Dates: start: 20111024, end: 20140311
  5. REVLIMID [Suspect]
     Active Substance: LENALIDOMIDE
     Indication: PLASMA CELL MYELOMA
     Route: 048
     Dates: start: 20120302, end: 20140415
  6. LEVAQUIN [Concomitant]
     Active Substance: LEVOFLOXACIN
     Indication: PNEUMONIA
     Route: 065
  7. AREDIA [Concomitant]
     Active Substance: PAMIDRONATE DISODIUM
     Indication: BONE LESION
     Route: 065
  8. PAMIDRONATE [Concomitant]
     Active Substance: PAMIDRONATE DISODIUM
     Indication: PRODUCT USED FOR UNKNOWN INDICATION
     Route: 065
     Dates: start: 20111024, end: 20140311
  9. PLAVIX [Concomitant]
     Active Substance: CLOPIDOGREL BISULFATE
     Indication: ANTICOAGULANT THERAPY
     Dosage: 900 MILLIGRAM
     Route: 065

REACTIONS (3)
  - Compression fracture [Recovered/Resolved]
  - Myelodysplastic syndrome [Not Recovered/Not Resolved]
  - Pyrexia [Recovered/Resolved]

NARRATIVE: CASE EVENT DATE: 20140220
